FAERS Safety Report 8660427 (Version 2)
Quarter: 2012Q4

REPORT INFORMATION
  Report Type: 
  Country: CO (occurrence: CO)
  Receive Date: 20120711
  Receipt Date: 20120918
  Transmission Date: 20130627
  Serious: Yes (Hospitalization, Other)
  Sender: FDA-Public Use
  Company Number: PHHY2012CO053472

PATIENT
  Age: 83 None
  Sex: Female
  Weight: 37 kg

DRUGS (1)
  1. EXELON PATCH [Suspect]
     Indication: DEMENTIA ALZHEIMER^S TYPE
     Dosage: 4.6 mg, UNK
     Route: 062
     Dates: start: 201204, end: 201204

REACTIONS (7)
  - Cerebrovascular accident [Recovered/Resolved]
  - Angiopathy [Recovered/Resolved]
  - Paroxysmal arrhythmia [Recovered/Resolved]
  - Tachycardia [Recovered/Resolved]
  - Palpitations [Recovered/Resolved]
  - Dyspnoea [Recovered/Resolved]
  - Skin irritation [Recovered/Resolved]
